FAERS Safety Report 4295097-6 (Version None)
Quarter: 2004Q1

REPORT INFORMATION
  Report Type: 
  Country: None (occurrence: None)
  Receive Date: 20040216
  Receipt Date: 20040121
  Transmission Date: 20041129
  Serious: Yes (Life-Threatening, Hospitalization, Other)
  Sender: FDA-Public Use
  Company Number: GB-GLAXOSMITHKLINE-B0320508A

PATIENT
  Age: 65 Year
  Sex: Female

DRUGS (9)
  1. ZOFRAN [Suspect]
     Indication: PROPHYLAXIS OF NAUSEA AND VOMITING
     Dosage: 4MG PER DAY
     Route: 042
     Dates: start: 20031220, end: 20031221
  2. SEVREDOL [Concomitant]
     Indication: POST PROCEDURAL PAIN
     Dosage: 30MG PER DAY
     Route: 048
     Dates: start: 20031221, end: 20031221
  3. PREDNISOLONE [Concomitant]
     Route: 048
  4. FERROUS SULFATE TAB [Concomitant]
     Route: 048
  5. PARACETAMOL [Concomitant]
  6. SULPHASALAZINE [Concomitant]
     Route: 048
  7. DICLOFENAC [Concomitant]
     Dosage: 25MG PER DAY
     Route: 048
  8. THYROXINE [Concomitant]
     Route: 048
  9. FOLIC ACID [Concomitant]
     Route: 048

REACTIONS (8)
  - BLOOD PRESSURE DECREASED [None]
  - CONVULSION [None]
  - HAEMOGLOBIN DECREASED [None]
  - LOSS OF CONSCIOUSNESS [None]
  - POST PROCEDURAL PAIN [None]
  - RASH [None]
  - RESPIRATORY ARREST [None]
  - VOMITING [None]
